FAERS Safety Report 5921088-2 (Version None)
Quarter: 2008Q4

REPORT INFORMATION
  Report Type: 
  Country: None (occurrence: None)
  Receive Date: 20081016
  Receipt Date: 20081010
  Transmission Date: 20090506
  Serious: Yes (Hospitalization)
  Sender: FDA-Public Use
  Company Number: PE-AVENTIS-200819586GDDC

PATIENT
  Age: 59 Year
  Sex: Female
  Weight: 96 kg

DRUGS (3)
  1. GLIMEPIRIDE [Suspect]
     Route: 048
     Dates: start: 20051116, end: 20080402
  2. GLIMEPIRIDE [Suspect]
     Route: 048
     Dates: start: 20080407
  3. METFORMIN HYDROCHLORIDE [Suspect]
     Route: 048

REACTIONS (8)
  - CELLULITIS [None]
  - DISEASE PROGRESSION [None]
  - ECZEMA NUMMULAR [None]
  - GAIT DISTURBANCE [None]
  - OEDEMA PERIPHERAL [None]
  - PAIN IN EXTREMITY [None]
  - PRURITUS [None]
  - STASIS DERMATITIS [None]
